FAERS Safety Report 8930254 (Version 4)
Quarter: 2013Q2

REPORT INFORMATION
  Report Type: Spontaneous
  Country: DE (occurrence: CA)
  Receive Date: 20121128
  Receipt Date: 20130424
  Transmission Date: 20140414
  Serious: Yes (Death, Hospitalization)
  Sender: FDA-Public Use
  Company Number: CA-FRI-1000040645

PATIENT
  Age: 70 Year
  Sex: Male
  Weight: 47 kg

DRUGS (5)
  1. ROFLUMILAST [Suspect]
     Indication: CHRONIC OBSTRUCTIVE PULMONARY DISEASE
     Dosage: 500 MCG
     Route: 048
     Dates: start: 201210, end: 20130313
  2. SPIRIVA [Concomitant]
  3. SYMBICORT WITH FORMOTEROL [Concomitant]
  4. SALBUTAMOL [Concomitant]
  5. MONTELUKAST [Concomitant]

REACTIONS (3)
  - Death [Fatal]
  - Pneumonia [Not Recovered/Not Resolved]
  - Respiratory failure [Unknown]
